FAERS Safety Report 7666304-4 (Version None)
Quarter: 2011Q3

REPORT INFORMATION
  Report Type: 
  Country: None (occurrence: None)
  Receive Date: 20110806
  Receipt Date: 20110627
  Transmission Date: 20111222
  Serious: No
  Sender: FDA-Public Use
  Company Number: US-ABBOTT-11P-163-0834782-00

PATIENT
  Sex: Female
  Weight: 59.02 kg

DRUGS (6)
  1. ASPIRIN [Concomitant]
     Indication: PRODUCT USED FOR UNKNOWN INDICATION
  2. BIRTH CONTROL PILL [Concomitant]
     Indication: CONTRACEPTION
  3. NIASPAN [Suspect]
     Dosage: AT HOUR OF SLEEP
  4. NIASPAN [Suspect]
     Dosage: AT HOUR OF SLEEP
  5. NIASPAN [Suspect]
     Indication: LOW DENSITY LIPOPROTEIN INCREASED
     Dosage: AT HOUR OF SLEEP
     Dates: start: 20100301
  6. NIASPAN [Suspect]
     Dosage: AT HOUR OF SLEEP

REACTIONS (4)
  - ABDOMINAL DISTENSION [None]
  - DRUG DOSE OMISSION [None]
  - HOT FLUSH [None]
  - WEIGHT INCREASED [None]
